FAERS Safety Report 19922720 (Version 1)
Quarter: 2021Q4

REPORT INFORMATION
  Report Type: Spontaneous
  Country: US (occurrence: US)
  Receive Date: 20211005
  Receipt Date: 20211005
  Transmission Date: 20220303
  Serious: No
  Sender: FDA-Public Use
  Company Number: US-AVEO ONCOLOGY-2021-AVEO-US003394

PATIENT

DRUGS (20)
  1. FOTIVDA [Suspect]
     Active Substance: TIVOZANIB HYDROCHLORIDE
     Indication: Renal cell carcinoma
     Dosage: 0.89 MG, EVERY DAY FOR 21 DAYS ON 7 DAYS OFF
     Route: 048
  2. ASPIRIN [Concomitant]
     Active Substance: ASPIRIN
  3. BENZONATATE [Concomitant]
     Active Substance: BENZONATATE
  4. FENTANYL [Concomitant]
     Active Substance: FENTANYL
  5. FLUTICASONE [Concomitant]
     Active Substance: FLUTICASONE
  6. IMITREX [Concomitant]
     Active Substance: SUMATRIPTAN SUCCINATE
  7. IPRATROPIUM BROMIDE [Concomitant]
     Active Substance: IPRATROPIUM BROMIDE
  8. LOMOTIL [Concomitant]
     Active Substance: ATROPINE SULFATE\DIPHENOXYLATE HYDROCHLORIDE
  9. LUMIGAN [Concomitant]
     Active Substance: BIMATOPROST
  10. MAGNESIUM [Concomitant]
     Active Substance: MAGNESIUM
  11. MEDROL [Concomitant]
     Active Substance: METHYLPREDNISOLONE
  12. MEGESTROL [Concomitant]
     Active Substance: MEGESTROL
  13. VITAMINS [Concomitant]
     Active Substance: VITAMINS
  14. ONDANSETRON [Concomitant]
     Active Substance: ONDANSETRON
  15. PERCOCET [Concomitant]
     Active Substance: ACETAMINOPHEN\OXYCODONE HYDROCHLORIDE
  16. POTASSIUM [Concomitant]
     Active Substance: POTASSIUM
  17. PRAVASTATIN [Concomitant]
     Active Substance: PRAVASTATIN
  18. RESTASIS [Concomitant]
     Active Substance: CYCLOSPORINE
  19. ROCKLATAN [Concomitant]
     Active Substance: LATANOPROST\NETARSUDIL MESYLATE
  20. VITAMIN D3 [Concomitant]
     Active Substance: CHOLECALCIFEROL

REACTIONS (3)
  - Fatigue [Unknown]
  - Paranasal sinus discomfort [Unknown]
  - Somnolence [Unknown]
